FAERS Safety Report 21966363 (Version 1)
Quarter: 2023Q1

REPORT INFORMATION
  Report Type: Report from Study
  Country: DE (occurrence: DE)
  Receive Date: 20230208
  Receipt Date: 20230208
  Transmission Date: 20230418
  Serious: Yes (Other)
  Sender: FDA-Public Use
  Company Number: DE-TAKEDA-2022TUS036131

PATIENT
  Age: 9 Year
  Sex: Male

DRUGS (6)
  1. ADVATE [Suspect]
     Active Substance: ANTIHEMOPHILIC FACTOR, HUMAN RECOMBINANT
     Indication: Factor VIII deficiency
     Dosage: 1000 INTERNATIONAL UNIT
     Route: 042
     Dates: start: 20210517
  2. ADVATE [Suspect]
     Active Substance: ANTIHEMOPHILIC FACTOR, HUMAN RECOMBINANT
     Indication: Factor VIII deficiency
     Dosage: 1000 INTERNATIONAL UNIT
     Route: 042
     Dates: start: 20210517
  3. ADVATE [Suspect]
     Active Substance: ANTIHEMOPHILIC FACTOR, HUMAN RECOMBINANT
     Indication: Factor VIII deficiency
     Dosage: 1000 INTERNATIONAL UNIT
     Route: 042
     Dates: start: 20210517
  4. ADVATE [Suspect]
     Active Substance: ANTIHEMOPHILIC FACTOR, HUMAN RECOMBINANT
     Dosage: 2000 INTERNATIONAL UNIT, 3/WEEK
     Route: 042
     Dates: start: 20210517
  5. ADVATE [Suspect]
     Active Substance: ANTIHEMOPHILIC FACTOR, HUMAN RECOMBINANT
     Dosage: 2000 INTERNATIONAL UNIT, 3/WEEK
     Route: 042
     Dates: start: 20210517
  6. ADVATE [Suspect]
     Active Substance: ANTIHEMOPHILIC FACTOR, HUMAN RECOMBINANT
     Dosage: 2000 INTERNATIONAL UNIT, 3/WEEK
     Route: 042
     Dates: start: 20210517

REACTIONS (6)
  - Muscle haemorrhage [Recovered/Resolved]
  - Haematoma muscle [Recovered/Resolved]
  - Haemorrhage [Recovered/Resolved]
  - Pain [Recovered/Resolved]
  - Skin laceration [Recovered/Resolved]
  - Abdominal pain [Recovered/Resolved]

NARRATIVE: CASE EVENT DATE: 20220508
